FAERS Safety Report 4682553-1 (Version None)
Quarter: 2005Q2

REPORT INFORMATION
  Report Type: 
  Country: None (occurrence: None)
  Receive Date: 20050606
  Receipt Date: 20050418
  Transmission Date: 20051028
  Serious: Yes (Hospitalization, Disabling)
  Sender: FDA-Public Use
  Company Number: US-MERCK-0504USA03695

PATIENT
  Age: 55 Year
  Sex: Male
  Weight: 105 kg

DRUGS (13)
  1. VIOXX [Suspect]
     Indication: ARTHRITIS
     Route: 048
     Dates: start: 20020314, end: 20030101
  2. VIOXX [Suspect]
     Route: 048
     Dates: start: 20020101, end: 20030101
  3. VIOXX [Suspect]
     Indication: OSTEOARTHRITIS
     Route: 048
     Dates: start: 20020314, end: 20030101
  4. VIOXX [Suspect]
     Route: 048
     Dates: start: 20020101, end: 20030101
  5. LISINOPRIL [Concomitant]
     Route: 065
  6. PLAVIX [Concomitant]
     Route: 065
  7. ZOCOR [Concomitant]
     Route: 065
  8. ADVAIR DISKUS 100/50 [Concomitant]
     Route: 065
  9. TOPROL-XL [Concomitant]
     Route: 065
  10. FLONASE [Concomitant]
     Route: 065
  11. LIQUIBID [Concomitant]
     Route: 065
  12. SINGULAIR [Concomitant]
     Route: 065
  13. FUROSEMIDE [Concomitant]
     Route: 065

REACTIONS (27)
  - ACUTE CORONARY SYNDROME [None]
  - ANXIETY [None]
  - ASTHENIA [None]
  - ASTHMA [None]
  - BLOOD TESTOSTERONE DECREASED [None]
  - CARDIAC FAILURE CONGESTIVE [None]
  - CHEST PAIN [None]
  - DEAFNESS [None]
  - DRUG INEFFECTIVE [None]
  - DYSPNOEA [None]
  - DYSPNOEA EXERTIONAL [None]
  - EMOTIONAL DISTRESS [None]
  - FEMORAL NERVE INJURY [None]
  - FLUID RETENTION [None]
  - GASTROOESOPHAGEAL REFLUX DISEASE [None]
  - GRANULOMA [None]
  - HYPERHIDROSIS [None]
  - HYPERTENSION [None]
  - MYOCARDIAL INFARCTION [None]
  - NOCTURIA [None]
  - OEDEMA PERIPHERAL [None]
  - SEXUAL DYSFUNCTION [None]
  - SLEEP APNOEA SYNDROME [None]
  - STOMACH DISCOMFORT [None]
  - SYNOVIAL CYST [None]
  - THYROID NEOPLASM [None]
  - TREMOR [None]
